FAERS Safety Report 7226825-5 (Version None)
Quarter: 2011Q1

REPORT INFORMATION
  Report Type: 
  Country: None (occurrence: None)
  Receive Date: 20110114
  Receipt Date: 20110106
  Transmission Date: 20110831
  Serious: Yes (Death, Life-Threatening)
  Sender: FDA-Public Use
  Company Number: TR-SANOFI-AVENTIS-200915572GDDC

PATIENT
  Age: 70 Year
  Sex: Male

DRUGS (8)
  1. AFLIBERCEPT [Suspect]
     Indication: NON-SMALL CELL LUNG CANCER
     Dosage: DOSE UNIT: 6 MG/KG
     Route: 042
     Dates: start: 20090513, end: 20090513
  2. DOCETAXEL [Suspect]
     Dosage: DOSE UNIT: 75 MG/M**2
     Route: 042
     Dates: start: 20090401, end: 20090401
  3. CORTICOSTEROIDS [Concomitant]
  4. DOCETAXEL [Suspect]
     Indication: NON-SMALL CELL LUNG CANCER
     Dosage: DOSE UNIT: 75 MG/M**2
     Route: 042
     Dates: start: 20090513, end: 20090513
  5. ECOPIRIN [Concomitant]
     Dates: start: 20060101
  6. DILTIAZEM [Concomitant]
     Dates: start: 20060101
  7. IRBESARTAN [Concomitant]
     Dates: start: 20060101
  8. AFLIBERCEPT [Suspect]
     Dosage: DOSE UNIT: 6 MG/KG
     Route: 042
     Dates: start: 20090401, end: 20090401

REACTIONS (3)
  - DYSPNOEA [None]
  - SUPRAVENTRICULAR TACHYCARDIA [None]
  - DEATH [None]
